FAERS Safety Report 9440981 (Version 2)
Quarter: 2013Q3

REPORT INFORMATION
  Report Type: Spontaneous
  Country: US (occurrence: US)
  Receive Date: 20130805
  Receipt Date: 20130926
  Transmission Date: 20140515
  Serious: Yes (Other)
  Sender: FDA-Public Use
  Company Number: US-PERRIGO-13US007770

PATIENT
  Age: 15 Year
  Sex: Female
  Weight: 43.08 kg

DRUGS (1)
  1. FLU + SEVERE COLD + COUGH NIGHTTIME 964 [Suspect]
     Indication: NASOPHARYNGITIS
     Dosage: 1 POUCH, QHS
     Route: 048
     Dates: start: 20130514, end: 20130514

REACTIONS (3)
  - Anosmia [Not Recovered/Not Resolved]
  - Ageusia [Not Recovered/Not Resolved]
  - Vomiting [Recovered/Resolved]
